FAERS Safety Report 25311916 (Version 1)
Quarter: 2025Q2

REPORT INFORMATION
  Report Type: Spontaneous
  Country: JP (occurrence: JP)
  Receive Date: 20250514
  Receipt Date: 20250514
  Transmission Date: 20250717
  Serious: Yes (Hospitalization, Other)
  Sender: MERCK SHARP & DOHME LLC
  Company Number: JP-009507513-2284318

PATIENT
  Age: 60 Year
  Sex: Female

DRUGS (1)
  1. KEYTRUDA [Suspect]
     Active Substance: PEMBROLIZUMAB
     Indication: Triple negative breast cancer
     Dosage: 200MG EVERY 3 WEEKS
     Route: 041

REACTIONS (6)
  - Decreased appetite [Unknown]
  - Malaise [Unknown]
  - Blood glucose decreased [Unknown]
  - Cortisol decreased [Unknown]
  - Adrenal insufficiency [Unknown]
  - Blood corticotrophin decreased [Unknown]
